FAERS Safety Report 5908112-8 (Version None)
Quarter: 2008Q4

REPORT INFORMATION
  Report Type: 
  Country: None (occurrence: None)
  Receive Date: 20081003
  Receipt Date: 20080923
  Transmission Date: 20090506
  Serious: Yes (Other)
  Sender: FDA-Public Use
  Company Number: US-PFIZER INC-2008080740

PATIENT
  Sex: Female

DRUGS (2)
  1. LYRICA [Suspect]
  2. CYMBALTA [Suspect]

REACTIONS (2)
  - HALLUCINATION, AUDITORY [None]
  - NEGATIVE THOUGHTS [None]
